FAERS Safety Report 4626401-4 (Version None)
Quarter: 2005Q1

REPORT INFORMATION
  Report Type: 
  Country: None (occurrence: None)
  Receive Date: 20050330
  Receipt Date: 20041112
  Transmission Date: 20050727
  Serious: Yes (Other)
  Sender: FDA-Public Use
  Company Number: 2004243771US

PATIENT
  Age: 54 Year
  Sex: Female
  Weight: 68 kg

DRUGS (5)
  1. CELEBREX [Suspect]
     Indication: ARTHRITIS
     Dosage: 100 MG (1 IN 1 D)
     Dates: start: 20000101
  2. CORTISONE ACETATE [Concomitant]
  3. INDAPAMINE (INDAPAMINE) [Concomitant]
  4. RISEDRONATE SODIUM (RISEDRONATE SODIUM) [Concomitant]
  5. ESTRADIOL [Concomitant]

REACTIONS (2)
  - DRUG INEFFECTIVE [None]
  - PAIN [None]
